FAERS Safety Report 21095650 (Version 1)
Quarter: 2022Q3

REPORT INFORMATION
  Report Type: Spontaneous
  Country: US (occurrence: None)
  Receive Date: 20220716
  Receipt Date: 20220716
  Transmission Date: 20221027
  Serious: Yes (Disabling, Other)
  Sender: FDA-Public Use
  Company Number: None

PATIENT
  Age: 16 Year
  Sex: Male
  Weight: 68.04 kg

DRUGS (1)
  1. DUPIXENT [Suspect]
     Active Substance: DUPILUMAB
     Indication: Skin disorder
     Dates: start: 20200816, end: 20220710

REACTIONS (12)
  - Adverse drug reaction [None]
  - Nausea [None]
  - Feeling abnormal [None]
  - Fatigue [None]
  - Limb injury [None]
  - Impaired healing [None]
  - Dysarthria [None]
  - Hypertension [None]
  - Headache [None]
  - Tension [None]
  - Flushing [None]
  - Insomnia [None]
